FAERS Safety Report 6330490-9 (Version None)
Quarter: 2009Q3

REPORT INFORMATION
  Report Type: 
  Country: None (occurrence: None)
  Receive Date: 20090827
  Receipt Date: 20090128
  Transmission Date: 20100115
  Serious: No
  Sender: FDA-Public Use
  Company Number: A0761580A

PATIENT
  Sex: Female

DRUGS (1)
  1. ZOVIRAX [Suspect]

REACTIONS (3)
  - APPLICATION SITE ERYTHEMA [None]
  - ORAL HERPES [None]
  - PRODUCT QUALITY ISSUE [None]
